FAERS Safety Report 4592892-0 (Version None)
Quarter: 2005Q1

REPORT INFORMATION
  Report Type: 
  Country: None (occurrence: None)
  Receive Date: 20050228
  Receipt Date: 20050217
  Transmission Date: 20050727
  Serious: Yes (Hospitalization)
  Sender: FDA-Public Use
  Company Number: FR-AMGEN-UK115101

PATIENT
  Age: 42 Year
  Sex: Male
  Weight: 91 kg

DRUGS (7)
  1. NEUPOGEN [Suspect]
     Indication: AGRANULOCYTOSIS
     Route: 042
     Dates: start: 20041202, end: 20041209
  2. PENICILLIN [Concomitant]
     Route: 042
     Dates: start: 20041129, end: 20041201
  3. LEVOTHYROX [Concomitant]
     Route: 048
  4. DETICENE [Concomitant]
     Route: 042
     Dates: start: 20041129, end: 20041201
  5. UROMITEXAN [Concomitant]
     Route: 042
     Dates: start: 20041129, end: 20041201
  6. HOLOXAN [Concomitant]
     Route: 042
     Dates: start: 20041129, end: 20041202
  7. DOXORUBICIN HCL [Concomitant]
     Route: 065

REACTIONS (1)
  - BACK PAIN [None]
